FAERS Safety Report 24006256 (Version 1)
Quarter: 2024Q2

REPORT INFORMATION
  Report Type: Spontaneous
  Country: US (occurrence: None)
  Receive Date: 20240621
  Receipt Date: 20240621
  Transmission Date: 20240716
  Serious: Yes (Other)
  Sender: FDA-Public Use
  Company Number: None

PATIENT
  Age: 67 Year
  Sex: Male

DRUGS (1)
  1. AMBRISENTAN [Suspect]
     Active Substance: AMBRISENTAN
     Indication: Ascariasis

REACTIONS (4)
  - Peripheral swelling [None]
  - Peripheral swelling [None]
  - Pain in extremity [None]
  - Headache [None]

NARRATIVE: CASE EVENT DATE: 20240621
